FAERS Safety Report 6644297-6 (Version None)
Quarter: 2010Q1

REPORT INFORMATION
  Report Type: 
  Country: None (occurrence: None)
  Receive Date: 20100322
  Receipt Date: 20090817
  Transmission Date: 20100710
  Serious: Yes (Death)
  Sender: FDA-Public Use
  Company Number: PHEH2009US18946

PATIENT
  Age: 83 Year
  Sex: Male
  Weight: 71.655 kg

DRUGS (9)
  1. GLEEVEC [Suspect]
     Indication: MYELOID LEUKAEMIA
     Dosage: 400 MG, DAILY
     Route: 048
     Dates: start: 20090620, end: 20090729
  2. ADVAIR DISKUS 100/50 [Concomitant]
  3. ZOCOR [Concomitant]
  4. CELEXA [Concomitant]
  5. PRILOSEC [Concomitant]
  6. PREDNISONE [Concomitant]
  7. PILOCARPINE HYDROCHLORIDE [Concomitant]
  8. COLCHICINE [Concomitant]
  9. ASPIRIN [Concomitant]

REACTIONS (1)
  - DEATH [None]
